FAERS Safety Report 15994575 (Version 2)
Quarter: 2019Q1

REPORT INFORMATION
  Report Type: Report from Study
  Country: GB (occurrence: GB)
  Receive Date: 20190222
  Receipt Date: 20190311
  Transmission Date: 20190418
  Serious: No
  Sender: FDA-Public Use
  Company Number: GB-ROCHE-2269974

PATIENT
  Age: 49 Year
  Sex: Female

DRUGS (3)
  1. OCREVUS [Suspect]
     Active Substance: OCRELIZUMAB
     Indication: RELAPSING-REMITTING MULTIPLE SCLEROSIS
     Route: 065
  2. PARACETAMOL [Concomitant]
     Active Substance: ACETAMINOPHEN
  3. OCREVUS [Suspect]
     Active Substance: OCRELIZUMAB
     Dosage: CYCLE 1 DOSE 2
     Route: 065

REACTIONS (3)
  - Pyrexia [Unknown]
  - Pharyngitis [Unknown]
  - Back pain [Unknown]
